FAERS Safety Report 18855054 (Version 2)
Quarter: 2023Q4

REPORT INFORMATION
  Report Type: Report from Study
  Country: DE (occurrence: DE)
  Receive Date: 20210206
  Receipt Date: 20231225
  Transmission Date: 20240109
  Serious: Yes (Other)
  Sender: FDA-Public Use
  Company Number: DE-AMGEN-DEUNI2021017933

PATIENT
  Age: 84 Year
  Sex: Female
  Weight: 74 kg

DRUGS (17)
  1. PANITUMUMAB [Suspect]
     Active Substance: PANITUMUMAB
     Indication: Colorectal cancer metastatic
     Dosage: 430 MILLIGRAM
     Route: 042
     Dates: start: 20190114
  2. PANITUMUMAB [Suspect]
     Active Substance: PANITUMUMAB
     Dosage: 400 MILLIGRAM
     Route: 042
     Dates: start: 20190211
  3. PANITUMUMAB [Suspect]
     Active Substance: PANITUMUMAB
     Dosage: 410 MILLIGRAM
     Route: 042
     Dates: start: 20190304
  4. PANITUMUMAB [Suspect]
     Active Substance: PANITUMUMAB
     Dosage: 420 MILLIGRAM
     Route: 042
     Dates: start: 20190318
  5. PANITUMUMAB [Suspect]
     Active Substance: PANITUMUMAB
     Dosage: 410 MILLIGRAM
     Route: 042
     Dates: start: 20190506
  6. LEUCOVORIN [Suspect]
     Active Substance: LEUCOVORIN\LEUCOVORIN CALCIUM
     Indication: Colorectal cancer metastatic
     Dosage: 500 MILLIGRAM
     Route: 065
     Dates: start: 20190114
  7. LEUCOVORIN [Suspect]
     Active Substance: LEUCOVORIN\LEUCOVORIN CALCIUM
     Dosage: 490 MILLIGRAM
     Route: 065
     Dates: start: 20190211
  8. LEUCOVORIN [Suspect]
     Active Substance: LEUCOVORIN\LEUCOVORIN CALCIUM
     Dosage: 500 MILLIGRAM
     Route: 065
     Dates: start: 20190415
  9. LEUCOVORIN [Suspect]
     Active Substance: LEUCOVORIN\LEUCOVORIN CALCIUM
     Dosage: 490 MILLIGRAM
     Route: 065
     Dates: start: 20190506
  10. FLUOROURACIL [Suspect]
     Active Substance: FLUOROURACIL
     Indication: Colorectal cancer metastatic
     Dosage: 2990 MILLIGRAM
     Route: 042
     Dates: start: 20190114
  11. FLUOROURACIL [Suspect]
     Active Substance: FLUOROURACIL
     Dosage: 2920 MILLIGRAM
     Route: 042
     Dates: start: 20190211
  12. FLUOROURACIL [Suspect]
     Active Substance: FLUOROURACIL
     Dosage: 2940 MILLIGRAM
     Route: 042
     Dates: start: 20190304
  13. FLUOROURACIL [Suspect]
     Active Substance: FLUOROURACIL
     Dosage: 2970 MILLIGRAM
     Route: 042
     Dates: start: 20190318
  14. FLUOROURACIL [Suspect]
     Active Substance: FLUOROURACIL
     Dosage: 2960 MILLIGRAM
     Route: 042
     Dates: start: 20190506
  15. OXALIPLATIN [Suspect]
     Active Substance: OXALIPLATIN
     Indication: Colorectal cancer metastatic
     Dosage: 110 MILLIGRAM
     Route: 065
     Dates: start: 20190114
  16. OXALIPLATIN [Suspect]
     Active Substance: OXALIPLATIN
     Dosage: 100 MILLIGRAM
     Route: 065
     Dates: start: 20190211
  17. ASPIRIN [Concomitant]
     Active Substance: ASPIRIN
     Indication: Cerebrovascular accident
     Dosage: 100 GRAM, QD
     Route: 048

REACTIONS (1)
  - Erysipelas [Recovered/Resolved]

NARRATIVE: CASE EVENT DATE: 20190513
